FAERS Safety Report 12758681 (Version 1)
Quarter: 2016Q3

REPORT INFORMATION
  Report Type: Spontaneous
  Country: US (occurrence: US)
  Receive Date: 20160916
  Receipt Date: 20160916
  Transmission Date: 20161109
  Serious: No
  Sender: FDA-Public Use
  Company Number: None

PATIENT
  Sex: Female

DRUGS (1)
  1. HUMIRA [Suspect]
     Active Substance: ADALIMUMAB
     Dosage: 0.8ML (40MG) EVERY 14 DAYS UNDER THE SKIN
     Route: 058
     Dates: start: 20160610

REACTIONS (3)
  - Rash [None]
  - Rash erythematous [None]
  - Rash pruritic [None]
